FAERS Safety Report 6642930-6 (Version None)
Quarter: 2010Q1

REPORT INFORMATION
  Report Type: 
  Country: None (occurrence: None)
  Receive Date: 20100319
  Receipt Date: 20100308
  Transmission Date: 20100710
  Serious: Yes (Death)
  Sender: FDA-Public Use
  Company Number: AU-JNJFOC-20100304157

PATIENT
  Age: 28 Year
  Sex: Male

DRUGS (7)
  1. TRAMADOL HYDROCHLORIDE [Suspect]
     Indication: DRUG USE FOR UNKNOWN INDICATION
     Route: 065
  2. MIRTAZAPINE [Concomitant]
     Route: 065
  3. AMITRIPTYLINE HCL [Concomitant]
     Route: 065
  4. AMPHETAMINE SULFATE [Concomitant]
     Route: 065
  5. DIAZEPAM [Concomitant]
     Route: 065
  6. OXAZEPAM [Concomitant]
     Route: 065
  7. TETRAHYDROCANNABINOL [Concomitant]
     Route: 065

REACTIONS (2)
  - DEATH [None]
  - OVERDOSE [None]
